FAERS Safety Report 4861890-1 (Version None)
Quarter: 2005Q4

REPORT INFORMATION
  Report Type: 
  Country: None (occurrence: None)
  Receive Date: 20051129
  Receipt Date: 20050801
  Transmission Date: 20060501
  Serious: No
  Sender: FDA-Public Use
  Company Number: WAES 0508USA00732

PATIENT
  Age: 50 Year
  Sex: Female

DRUGS (3)
  1. ZETIA [Suspect]
     Indication: HYPERLIPIDAEMIA
     Dosage: 10 MG DAILY PO
     Route: 048
     Dates: start: 20050621, end: 20050801
  2. PRAVACHOL [Concomitant]
  3. THERAPY UNSPECIFIED [Concomitant]

REACTIONS (1)
  - HEPATIC ENZYME INCREASED [None]
